FAERS Safety Report 22519565 (Version 1)
Quarter: 2023Q2

REPORT INFORMATION
  Report Type: Spontaneous
  Country: US (occurrence: None)
  Receive Date: 20230602
  Receipt Date: 20230602
  Transmission Date: 20230721
  Serious: No
  Sender: FDA-Public Use
  Company Number: None

PATIENT
  Age: 28 Year
  Sex: Female
  Weight: 58.5 kg

DRUGS (6)
  1. CIPRO [Suspect]
     Active Substance: CIPROFLOXACIN HYDROCHLORIDE
     Indication: Gastrointestinal infection
     Dosage: FREQUENCY : TWICE A DAY;?
     Route: 048
     Dates: start: 20230528, end: 20230601
  2. METRONIDAZOLE [Suspect]
     Active Substance: METRONIDAZOLE
  3. XYREM [Concomitant]
     Active Substance: SODIUM OXYBATE
  4. metronidazole 500 mg [Concomitant]
  5. VITAMIN C [Concomitant]
     Active Substance: ASCORBIC ACID
  6. VITAMIN B12 [Concomitant]
     Active Substance: CYANOCOBALAMIN

REACTIONS (5)
  - Neuropathy peripheral [None]
  - Neuralgia [None]
  - Muscular weakness [None]
  - Sensory disturbance [None]
  - Pain [None]

NARRATIVE: CASE EVENT DATE: 20230530
